FAERS Safety Report 8233203-9 (Version None)
Quarter: 2012Q1

REPORT INFORMATION
  Report Type: 
  Country: None (occurrence: None)
  Receive Date: 20120326
  Receipt Date: 20120320
  Transmission Date: 20120608
  Serious: Yes (Other)
  Sender: FDA-Public Use
  Company Number: US-PFIZER INC-2012072901

PATIENT
  Sex: Female
  Weight: 71.202 kg

DRUGS (6)
  1. CELEBREX [Suspect]
     Indication: ARTHRITIS
     Dosage: 200 MG, 1X/DAY
     Route: 048
     Dates: start: 20120222, end: 20120312
  2. CELEBREX [Suspect]
     Indication: FIBROMYALGIA
  3. LYRICA [Concomitant]
     Indication: FIBROMYALGIA
     Dosage: UNK, 1X/DAY
  4. CLONAZEPAM [Concomitant]
     Indication: SLEEP DISORDER
     Dosage: 2 MG, UNK
  5. CITALOPRAM [Concomitant]
     Indication: SLEEP DISORDER
     Dosage: 20 MG, 1X/DAY
  6. CELEBREX [Suspect]
     Indication: NERVE INJURY

REACTIONS (6)
  - SOMNOLENCE [None]
  - HEADACHE [None]
  - DIZZINESS [None]
  - PNEUMONIA [None]
  - SINUSITIS [None]
  - BRONCHITIS [None]
